FAERS Safety Report 9085605 (Version 1)
Quarter: 2013Q1

REPORT INFORMATION
  Report Type: Report from Study
  Country: US (occurrence: US)
  Receive Date: 20130131
  Receipt Date: 20130131
  Transmission Date: 20140127
  Serious: No
  Sender: FDA-Public Use
  Company Number: US-ABBOTT-12P-163-0994051-00

PATIENT
  Sex: Male

DRUGS (1)
  1. HUMIRA [Suspect]
     Indication: ANKYLOSING SPONDYLITIS
     Dosage: 40MG WEEKLY
     Route: 058
     Dates: start: 201209

REACTIONS (2)
  - Drug dose omission [Recovered/Resolved]
  - Nasopharyngitis [Recovered/Resolved]
